FAERS Safety Report 24762661 (Version 1)
Quarter: 2024Q4

REPORT INFORMATION
  Report Type: Spontaneous
  Country: ES (occurrence: ES)
  Receive Date: 20241221
  Receipt Date: 20241221
  Transmission Date: 20250115
  Serious: Yes (Death, Life-Threatening, Other)
  Sender: MERCK
  Company Number: ES-MERCK-1112ESP00006

PATIENT
  Age: 21 Year
  Sex: Male

DRUGS (14)
  1. CANCIDAS [Suspect]
     Active Substance: CASPOFUNGIN ACETATE
     Indication: Blood culture positive
  2. CANCIDAS [Suspect]
     Active Substance: CASPOFUNGIN ACETATE
     Indication: Candida infection
  3. DEXKETOPROFEN [Suspect]
     Active Substance: DEXKETOPROFEN
     Indication: Procedural pain
  4. TRAMADOL HYDROCHLORIDE [Suspect]
     Active Substance: TRAMADOL HYDROCHLORIDE
     Indication: Procedural pain
  5. CEFAZOLIN [Suspect]
     Active Substance: CEFAZOLIN
     Indication: Procedural pain
  6. LEVOFLOXACIN [Suspect]
     Active Substance: LEVOFLOXACIN
     Indication: Postoperative wound infection
  7. MEROPENEM [Suspect]
     Active Substance: MEROPENEM
     Indication: Postoperative wound infection
  8. TEICOPLANIN [Suspect]
     Active Substance: TEICOPLANIN
     Indication: Postoperative wound infection
  9. AMIKACIN [Suspect]
     Active Substance: AMIKACIN
     Indication: Postoperative wound infection
  10. ACYCLOVIR [Suspect]
     Active Substance: ACYCLOVIR
     Indication: Evidence based treatment
  11. LEVETIRACETAM [Suspect]
     Active Substance: LEVETIRACETAM
     Indication: Seizure
  12. PIPERACILLIN SODIUM\TAZOBACTAM SODIUM [Suspect]
     Active Substance: PIPERACILLIN SODIUM\TAZOBACTAM SODIUM
  13. LINEZOLID [Suspect]
     Active Substance: LINEZOLID
  14. METICORTEN [Suspect]
     Active Substance: PREDNISONE
     Indication: Graft versus host disease

REACTIONS (2)
  - Drug reaction with eosinophilia and systemic symptoms [Fatal]
  - Multiple organ dysfunction syndrome [Fatal]
